FAERS Safety Report 12451004 (Version 4)
Quarter: 2016Q4

REPORT INFORMATION
  Report Type: Spontaneous
  Country: IT (occurrence: IT)
  Receive Date: 20160609
  Receipt Date: 20161111
  Transmission Date: 20170207
  Serious: Yes (Disabling)
  Sender: FDA-Public Use
  Company Number: IT-SYMPLMED PHARMACEUTICALS-2016SYMPLMED000236

PATIENT

DRUGS (1)
  1. COVERSYL [Suspect]
     Active Substance: PERINDOPRIL
     Indication: HYPERTENSION
     Dosage: 5 MG, QD
     Route: 048
     Dates: end: 20160606

REACTIONS (1)
  - Male sexual dysfunction [Recovering/Resolving]

NARRATIVE: CASE EVENT DATE: 2016
